FAERS Safety Report 14342285 (Version 3)
Quarter: 2018Q2

REPORT INFORMATION
  Report Type: Report from Study
  Country: GB (occurrence: GB)
  Receive Date: 20180102
  Receipt Date: 20180529
  Transmission Date: 20180711
  Serious: Yes (Death)
  Sender: FDA-Public Use
  Company Number: GB-BIOGEN-2017BI00503946

PATIENT
  Sex: Male

DRUGS (1)
  1. NUSINERSEN [Suspect]
     Active Substance: NUSINERSEN
     Indication: SPINAL MUSCULAR ATROPHY
     Route: 037

REACTIONS (1)
  - Lower respiratory tract infection [Fatal]
